FAERS Safety Report 17546036 (Version 1)
Quarter: 2020Q1

REPORT INFORMATION
  Report Type: Spontaneous
  Country: GB (occurrence: GB)
  Receive Date: 20200316
  Receipt Date: 20200316
  Transmission Date: 20200409
  Serious: Yes (Hospitalization)
  Sender: FDA-Public Use
  Company Number: GB-MYLANLABS-2020M1026712

PATIENT
  Age: 80 Year
  Sex: Male

DRUGS (21)
  1. LAXIDO [Concomitant]
     Active Substance: POLYETHYLENE GLYCOL 3350\POTASSIUM CHLORIDE\SODIUM BICARBONATE\SODIUM CHLORIDE
     Dosage: 2 DOSAGE FORM, QD(DISSOLVE CONTENTS OF ONE SACHET IN HALF A GLASS (125ML) OF WATER)
  2. CASSIA SENNA [Concomitant]
     Active Substance: HERBALS\SENNOSIDES
     Indication: CONSTIPATION
     Dosage: 15 MILLIGRAM, PRN(TWO TO BE TAKEN AT NIGHT)
  3. MICONAZOLE. [Concomitant]
     Active Substance: MICONAZOLE
     Dosage: 2 DOSAGE FORM, QD(APPLY THINLY AS DIRECTED)
  4. LINAGLIPTIN [Concomitant]
     Active Substance: LINAGLIPTIN
     Dosage: 5 MILLIGRAM, QD
  5. GABAPENTIN. [Suspect]
     Active Substance: GABAPENTIN
     Indication: PRODUCT USED FOR UNKNOWN INDICATION
     Dosage: 300 MILLIGRAM, QD
  6. HYDROCORTISONE. [Concomitant]
     Active Substance: HYDROCORTISONE
     Dosage: UNK
  7. THIAMINE. [Concomitant]
     Active Substance: THIAMINE
     Dosage: 300 MILLIGRAM, QD
  8. MACROGOL [Concomitant]
     Active Substance: POLYETHYLENE GLYCOLS
     Dosage: UNK
  9. CLOPIDOGREL [Concomitant]
     Active Substance: CLOPIDOGREL BISULFATE
     Dosage: 75 MILLIGRAM, QD
  10. GLYCERYL TRINITRATE [Concomitant]
     Active Substance: NITROGLYCERIN
     Indication: CHEST PAIN
     Dosage: 400 MICROGRAM, PRN(ONE OR TWO DOSES UNDER TONGUE AND THEN CLOSE MOUTH AS DIRECTED)
     Route: 060
  11. TAMSULOSIN [Concomitant]
     Active Substance: TAMSULOSIN
     Dosage: 400 MICROGRAM, QD
  12. ZOPICLONE [Concomitant]
     Active Substance: ZOPICLONE
     Dosage: 3.75 MILLIGRAM, QD(AT NIGHT)
  13. HYDROCORTISONE. [Concomitant]
     Active Substance: HYDROCORTISONE
     Dosage: 2 DOSAGE FORM, QD(APPLY THINLY AS DIRECTED)
  14. SERTRALINE [Concomitant]
     Active Substance: SERTRALINE HYDROCHLORIDE
     Dosage: 50 MILLIGRAM, QD(MORNING)
  15. MIRTAZAPINE. [Concomitant]
     Active Substance: MIRTAZAPINE
     Dosage: 15 MILLIGRAM, QD
  16. FUSIDIC ACID [Concomitant]
     Active Substance: FUSIDIC ACID
     Dosage: UNK
  17. LAMOTRIGINE. [Concomitant]
     Active Substance: LAMOTRIGINE
     Dosage: 75 MILLIGRAM, QD(FOR TWO WEEKS, THEN TWO 50MG TO BE TAKEN FOR TWO WEEKS)
  18. BISACODYL. [Concomitant]
     Active Substance: BISACODYL
     Dosage: AT NIGHT
  19. FUCIDIN H                          /01518501/ [Concomitant]
     Dosage: UNK(APPLY THINLY ONCE OR TWICE A DAY)
  20. VITAMIN B COMPOUND STRONG [Concomitant]
     Active Substance: NIACINAMIDE\PYRIDOXINE HYDROCHLORIDE\RIBOFLAVIN\THIAMINE HYDROCHLORIDE
     Dosage: 6 DOSAGE FORM, QD
  21. FOLIC ACID. [Concomitant]
     Active Substance: FOLIC ACID
     Dosage: 5 MILLIGRAM, QD

REACTIONS (1)
  - Dementia [Unknown]
